FAERS Safety Report 17588097 (Version 1)
Quarter: 2020Q1

REPORT INFORMATION
  Report Type: Spontaneous
  Country: US (occurrence: US)
  Receive Date: 20200327
  Receipt Date: 20200327
  Transmission Date: 20200409
  Serious: No
  Sender: FDA-Public Use
  Company Number: US-MTPC-MTDA2020-0047674

PATIENT
  Age: 43 Year
  Sex: Male

DRUGS (1)
  1. RADICAVA [Suspect]
     Active Substance: EDARAVONE
     Indication: AMYOTROPHIC LATERAL SCLEROSIS
     Dosage: 60 MILLIGRAM OVER 60 MINUTES, QD 10 DAYS OUT OF 14 DAYS FOLLOWED BY A 14 DAY DRUG FREE PERIOD
     Route: 065
     Dates: start: 20190902

REACTIONS (2)
  - Poor venous access [Unknown]
  - Product dose omission [Unknown]

NARRATIVE: CASE EVENT DATE: 20200318
